FAERS Safety Report 8980154 (Version 3)
Quarter: 2013Q1

REPORT INFORMATION
  Report Type: Spontaneous
  Country: JP (occurrence: JP)
  Receive Date: 20121221
  Receipt Date: 20130228
  Transmission Date: 20140127
  Serious: Yes (Other)
  Sender: FDA-Public Use
  Company Number: PHHY2012JP074991

PATIENT
  Age: 58 None
  Sex: Male
  Weight: 38 kg

DRUGS (9)
  1. EXELON PATCH [Suspect]
     Indication: DEMENTIA
     Dosage: 4.5 MG, DAILY
     Route: 062
     Dates: start: 20111026, end: 20111121
  2. EXELON PATCH [Suspect]
     Dosage: 9 MG, DAILY
     Route: 062
     Dates: start: 20111122, end: 20111219
  3. EXELON PATCH [Suspect]
     Dosage: 13.5 MG, DAILY
     Route: 062
     Dates: start: 20111220, end: 20120117
  4. EXELON PATCH [Suspect]
     Dosage: 18 MG, DAILY
     Route: 062
     Dates: start: 20120118, end: 20120617
  5. GRAMALIL [Concomitant]
     Indication: DEMENTIA
     Dosage: 100 MG, UNK
     Route: 048
     Dates: start: 20111026
  6. YOKUKAN-SAN [Concomitant]
     Indication: DEMENTIA
     Dosage: 5 G, UNK
     Route: 048
     Dates: start: 20111026, end: 20120705
  7. DEPAS [Concomitant]
     Indication: DEMENTIA
     Dosage: 1000 MG, UNK
     Route: 048
     Dates: start: 20111026
  8. UBRETID [Concomitant]
     Indication: DYSURIA
     Dosage: 5 MG, UNK
     Route: 048
     Dates: start: 20120628, end: 20120818
  9. URIEF [Concomitant]
     Indication: DYSURIA
     Dosage: 4 MG, UNK
     Route: 048
     Dates: start: 20120628, end: 20120818

REACTIONS (9)
  - Urinary retention [Recovering/Resolving]
  - Anuria [Unknown]
  - Diet refusal [Not Recovered/Not Resolved]
  - Restlessness [Recovering/Resolving]
  - Urinary tract infection [Recovered/Resolved]
  - Pyrexia [Recovered/Resolved]
  - Upper respiratory tract infection [Recovered/Resolved]
  - White blood cell count increased [Unknown]
  - Haemoglobin decreased [Unknown]
